FAERS Safety Report 8615203-X (Version None)
Quarter: 2012Q3

REPORT INFORMATION
  Report Type: 
  Country: None (occurrence: None)
  Receive Date: 20120823
  Receipt Date: 20120821
  Transmission Date: 20120928
  Serious: Yes (Death, Hospitalization)
  Sender: FDA-Public Use
  Company Number: DE-ABBOTT-12P-062-0933602-00

PATIENT
  Sex: Male
  Weight: 95 kg

DRUGS (3)
  1. HUMIRA [Suspect]
     Indication: PSORIATIC ARTHROPATHY
     Route: 058
     Dates: start: 20120107, end: 20120323
  2. IBUPROFEN [Concomitant]
     Indication: PSORIATIC ARTHROPATHY
     Dosage: 600 MG AS NEEDED
     Dates: start: 20100901
  3. METHOTREXATE SODIUM [Concomitant]
     Indication: PSORIATIC ARTHROPATHY
     Dosage: 20 MG PER WEEK
     Dates: start: 20090401

REACTIONS (3)
  - CARDIAC FAILURE [None]
  - ALCOHOL ABUSE [None]
  - ALCOHOL POISONING [None]
